FAERS Safety Report 9282227 (Version 1)
Quarter: 2013Q2

REPORT INFORMATION
  Report Type: Spontaneous
  Country: US (occurrence: None)
  Receive Date: 20130509
  Receipt Date: 20130509
  Transmission Date: 20140414
  Serious: Yes (Death)
  Sender: FDA-Public Use
  Company Number: None

PATIENT
  Age: 44 Year
  Sex: Female
  Weight: 95.26 kg

DRUGS (2)
  1. TIOTROPIUM [Suspect]
     Indication: DYSPNOEA
     Dosage: ONE CAPSULE DAILY INHAL
     Route: 055
     Dates: start: 20130101, end: 20130219
  2. TIOTROPIUM [Suspect]
     Indication: CHRONIC OBSTRUCTIVE PULMONARY DISEASE
     Dosage: ONE CAPSULE DAILY INHAL
     Route: 055
     Dates: start: 20130101, end: 20130219

REACTIONS (1)
  - Sudden cardiac death [None]
